FAERS Safety Report 10203410 (Version 1)
Quarter: 2014Q2

REPORT INFORMATION
  Report Type: Report from Study
  Country: TR (occurrence: TR)
  Receive Date: 20140529
  Receipt Date: 20140529
  Transmission Date: 20141212
  Serious: Yes (Other)
  Sender: FDA-Public Use
  Company Number: TR-US-EMD SERONO, INC.-7294619

PATIENT
  Sex: Female
  Weight: 69 kg

DRUGS (1)
  1. REBIF [Suspect]
     Indication: MULTIPLE SCLEROSIS

REACTIONS (3)
  - Diabetes mellitus [Unknown]
  - Blindness [Unknown]
  - Weight decreased [Unknown]
